FAERS Safety Report 11289471 (Version 1)
Quarter: 2015Q3

REPORT INFORMATION
  Report Type: Spontaneous
  Country: US (occurrence: US)
  Receive Date: 20150721
  Receipt Date: 20150721
  Transmission Date: 20151125
  Serious: No
  Sender: FDA-Public Use
  Company Number: US-GALDERMA-US14002335

PATIENT
  Age: 66 Year
  Sex: Female

DRUGS (16)
  1. ORACEA [Suspect]
     Active Substance: DOXYCYCLINE
     Indication: ROSACEA
     Route: 061
     Dates: start: 2013
  2. GROWBONE SUPPLEMENT [Concomitant]
     Indication: SUPPLEMENTATION THERAPY
     Route: 048
  3. STRONTIUM [Concomitant]
     Active Substance: STRONTIUM
     Indication: SUPPLEMENTATION THERAPY
     Route: 048
  4. ULTRA G.L.A. (BORAGE OIL) [Concomitant]
     Indication: SUPPLEMENTATION THERAPY
     Route: 048
  5. CALCIUM [Concomitant]
     Active Substance: CALCIUM
     Indication: SUPPLEMENTATION THERAPY
     Route: 048
  6. FIORICET [Concomitant]
     Active Substance: ACETAMINOPHEN\BUTALBITAL\CAFFEINE
     Indication: NECK PAIN
  7. SELENIUM [Concomitant]
     Active Substance: SELENIUM
     Indication: SUPPLEMENTATION THERAPY
     Route: 048
  8. VITAMIN D3 [Concomitant]
     Active Substance: CHOLECALCIFEROL
     Indication: SUPPLEMENTATION THERAPY
     Route: 048
  9. FIORICET [Concomitant]
     Active Substance: ACETAMINOPHEN\BUTALBITAL\CAFFEINE
     Indication: BACK PAIN
     Route: 048
  10. KELP [Concomitant]
     Active Substance: KELP
     Indication: SUPPLEMENTATION THERAPY
     Route: 048
  11. ACIDOPHILUS (LACTOBACILLUS ACIDOPHILUS) [Concomitant]
     Indication: PROBIOTIC THERAPY
     Route: 048
  12. ZINC WITH COPPER [Concomitant]
     Indication: SUPPLEMENTATION THERAPY
     Route: 048
  13. ALEVE (NAPROXEN) [Concomitant]
     Indication: ANALGESIC THERAPY
     Route: 048
  14. VITAMIN K2 [Concomitant]
     Active Substance: MENAQUINONE 6
     Indication: SUPPLEMENTATION THERAPY
     Route: 048
  15. VITAMIN C [Concomitant]
     Active Substance: ASCORBIC ACID
     Indication: SUPPLEMENTATION THERAPY
     Dosage: 500 MG
     Route: 048
  16. MAGNESIUM [Concomitant]
     Active Substance: MAGNESIUM
     Indication: SUPPLEMENTATION THERAPY
     Dosage: 1200MG
     Route: 048

REACTIONS (2)
  - Arthralgia [Not Recovered/Not Resolved]
  - Pain [Not Recovered/Not Resolved]

NARRATIVE: CASE EVENT DATE: 201305
